FAERS Safety Report 15009643 (Version 2)
Quarter: 2018Q4

REPORT INFORMATION
  Report Type: Spontaneous
  Country: US (occurrence: US)
  Receive Date: 20180614
  Receipt Date: 20181117
  Transmission Date: 20190204
  Serious: Yes (Life-Threatening, Hospitalization, Other)
  Sender: FDA-Public Use
  Company Number: US-AUROBINDO-AUR-APL-2018-031446

PATIENT
  Age: 40 Year
  Sex: Female

DRUGS (2)
  1. MYCOPHENOLATE MOFETIL. [Suspect]
     Active Substance: MYCOPHENOLATE MOFETIL
     Indication: LUPUS NEPHRITIS
     Dosage: 500 MILLIGRAM, 3 TIMES A DAY, STARTED APPROXIMATELY 2 MONTHS PRIOR TO PRESENTATION
     Route: 065
  2. PREDNISONE. [Suspect]
     Active Substance: PREDNISONE
     Indication: LUPUS NEPHRITIS
     Dosage: 20 MILLIGRAM, DAILY
     Route: 065

REACTIONS (6)
  - Mycobacterial infection [Not Recovered/Not Resolved]
  - Paranasal sinus discomfort [Unknown]
  - Pyrexia [Unknown]
  - Chills [Unknown]
  - Disseminated tuberculosis [Not Recovered/Not Resolved]
  - Headache [Unknown]
